FAERS Safety Report 9027971 (Version 1)
Quarter: 2013Q1

REPORT INFORMATION
  Report Type: Spontaneous
  Country: US (occurrence: None)
  Receive Date: 20130114
  Receipt Date: 20130114
  Transmission Date: 20140127
  Serious: Yes (Hospitalization)
  Sender: FDA-Public Use
  Company Number: None

PATIENT
  Age: 58 Year
  Sex: Female
  Weight: 84.09 kg

DRUGS (4)
  1. CLINDAMYCIN [Suspect]
     Dosage: 2 OTO PO
     Route: 048
     Dates: start: 20130104, end: 20130105
  2. SIMVASTATIN [Concomitant]
  3. AMLODIPINE [Suspect]
  4. MENEST [Concomitant]

REACTIONS (6)
  - Tremor [None]
  - Dizziness [None]
  - Chills [None]
  - Vomiting [None]
  - Rash generalised [None]
  - Stevens-Johnson syndrome [None]
